FAERS Safety Report 25584237 (Version 1)
Quarter: 2025Q3

REPORT INFORMATION
  Report Type: Report from Study
  Country: EU (occurrence: EU)
  Receive Date: 20250721
  Receipt Date: 20250721
  Transmission Date: 20251020
  Serious: Yes (Hospitalization)
  Sender: CELLTRION
  Company Number: EU-ROCHE-10000233249

PATIENT

DRUGS (1)
  1. RITUXIMAB [Suspect]
     Active Substance: RITUXIMAB
     Indication: Follicular lymphoma
     Route: 058
     Dates: start: 20230118, end: 20241127

REACTIONS (2)
  - Gastritis [Not Recovered/Not Resolved]
  - Abnormal loss of weight [Unknown]

NARRATIVE: CASE EVENT DATE: 20250116
